FAERS Safety Report 7657149-X (Version None)
Quarter: 2011Q3

REPORT INFORMATION
  Report Type: 
  Country: None (occurrence: None)
  Receive Date: 20110804
  Receipt Date: 20110601
  Transmission Date: 20111222
  Serious: No
  Sender: FDA-Public Use
  Company Number: US-GLAXOSMITHKLINE-A0929895A

PATIENT
  Age: 75 Year
  Sex: Female

DRUGS (11)
  1. MULTAQ [Concomitant]
  2. SYNTHROID [Concomitant]
  3. RAMIPRIL [Concomitant]
  4. FUROSEMIDE [Concomitant]
  5. LIPITOR [Concomitant]
  6. COUMADIN [Concomitant]
  7. ADVAIR DISKUS 100/50 [Suspect]
     Indication: CHRONIC OBSTRUCTIVE PULMONARY DISEASE
     Dosage: 2PUFF TWICE PER DAY
     Route: 055
     Dates: start: 20100101
  8. PREDNISONE [Concomitant]
  9. DILTIAZEM [Concomitant]
  10. OMEPRAZOLE [Concomitant]
  11. POTASSIUM [Concomitant]

REACTIONS (4)
  - HEADACHE [None]
  - BALANCE DISORDER [None]
  - NAUSEA [None]
  - NECK PAIN [None]
